FAERS Safety Report 17846469 (Version 3)
Quarter: 2021Q1

REPORT INFORMATION
  Report Type: Spontaneous
  Country: US (occurrence: US)
  Receive Date: 20200601
  Receipt Date: 20210217
  Transmission Date: 20210419
  Serious: Yes (Other)
  Sender: FDA-Public Use
  Company Number: US-SHIRE-US202017924

PATIENT
  Age: 53 Year

DRUGS (3)
  1. HEMOFIL M [Suspect]
     Active Substance: ANTIHEMOPHILIC FACTOR HUMAN
     Dosage: 3580 INTERNATIONAL UNIT
     Route: 042
  2. HEMOFIL M [Suspect]
     Active Substance: ANTIHEMOPHILIC FACTOR HUMAN
     Indication: PRODUCT USED FOR UNKNOWN INDICATION
     Dosage: 2900 INTERNATIONAL UNIT
     Route: 042
  3. HEMOFIL M [Suspect]
     Active Substance: ANTIHEMOPHILIC FACTOR HUMAN
     Dosage: 4000 INTERNATIONAL UNIT
     Route: 042

REACTIONS (7)
  - Post procedural haematuria [Unknown]
  - Catheter placement [Unknown]
  - Muscle contractions involuntary [Unknown]
  - Haematuria [Unknown]
  - Bladder discomfort [Recovered/Resolved]
  - Pallor [Unknown]
  - Lethargy [Unknown]

NARRATIVE: CASE EVENT DATE: 20200430
